FAERS Safety Report 7124143-7 (Version None)
Quarter: 2010Q4

REPORT INFORMATION
  Report Type: 
  Country: None (occurrence: None)
  Receive Date: 20101126
  Receipt Date: 20101112
  Transmission Date: 20110411
  Serious: Yes (Other)
  Sender: FDA-Public Use
  Company Number: PHHY2010US77258

PATIENT
  Age: 37 Year
  Sex: Female

DRUGS (1)
  1. CLOZAPINE [Suspect]
     Indication: SCHIZOAFFECTIVE DISORDER
     Dosage: UNK

REACTIONS (3)
  - AGRANULOCYTOSIS [None]
  - CHRONIC LYMPHOCYTIC LEUKAEMIA [None]
  - LYMPHOCYTE COUNT INCREASED [None]
